FAERS Safety Report 9440009 (Version 2)
Quarter: 2013Q3

REPORT INFORMATION
  Report Type: Spontaneous
  Country: ES (occurrence: ES)
  Receive Date: 20130805
  Receipt Date: 20130811
  Transmission Date: 20140515
  Serious: Yes (Other)
  Sender: FDA-Public Use
  Company Number: ES-UCBSA-093387

PATIENT
  Sex: Male

DRUGS (3)
  1. KEPPRA [Suspect]
     Indication: STATUS EPILEPTICUS
     Dates: start: 2013
  2. PHENYTOIN [Suspect]
     Indication: CONVULSION
     Dates: start: 2013
  3. VALPROIC [Suspect]
     Indication: CONVULSION
     Dates: start: 2013

REACTIONS (2)
  - Hyponatraemia [Recovered/Resolved]
  - Confusional state [Recovered/Resolved]
